FAERS Safety Report 10728614 (Version 1)
Quarter: 2015Q1

REPORT INFORMATION
  Report Type: Spontaneous
  Country: AT (occurrence: AT)
  Receive Date: 20150122
  Receipt Date: 20150122
  Transmission Date: 20150721
  Serious: Yes (Other)
  Sender: FDA-Public Use
  Company Number: AT-PAR PHARMACEUTICAL, INC-2015SCPR010322

PATIENT

DRUGS (1)
  1. LEVETIRACETAM. [Suspect]
     Active Substance: LEVETIRACETAM
     Indication: SEIZURE
     Dosage: 30 MG/KG, / DAY
     Route: 065

REACTIONS (8)
  - Pulmonary valve incompetence [Unknown]
  - Mucosal inflammation [Unknown]
  - Myelodysplastic syndrome [Unknown]
  - Transplant failure [Recovering/Resolving]
  - Klebsiella sepsis [Unknown]
  - Neutropenia [Unknown]
  - Pneumonia [Unknown]
  - Toxicity to various agents [Unknown]
